FAERS Safety Report 8509357-3 (Version None)
Quarter: 2012Q3

REPORT INFORMATION
  Report Type: 
  Country: None (occurrence: None)
  Receive Date: 20120713
  Receipt Date: 20120704
  Transmission Date: 20120928
  Serious: Yes (Other)
  Sender: FDA-Public Use
  Company Number: JP-VERTEX PHARMACEUTICALS INC.-AE-2012-010097

PATIENT
  Age: 63 Year
  Sex: Female

DRUGS (14)
  1. TELAVIC (TELAPREVIR) [Suspect]
     Indication: HEPATITIS C
     Route: 048
     Dates: start: 20120508, end: 20120525
  2. PEGINTERFERON ALFA-2B [Concomitant]
     Indication: HEPATITIS C
     Route: 058
     Dates: start: 20120508, end: 20120522
  3. REBETOL [Concomitant]
     Indication: HEPATITIS C
     Route: 048
     Dates: start: 20120508, end: 20120526
  4. AMLODIPINE BESYLATE [Concomitant]
     Route: 048
  5. OLMESARTAN MEDOXOMIL [Concomitant]
     Route: 048
  6. PLAVIX [Concomitant]
     Route: 048
     Dates: end: 20120523
  7. SIGMART [Concomitant]
     Route: 048
  8. MUCOSTA [Concomitant]
     Route: 048
  9. DEPAS [Concomitant]
     Route: 048
  10. ZOLPIDEM [Concomitant]
     Route: 048
  11. DESYREL [Concomitant]
     Route: 048
  12. LANSOPRAZOLE [Concomitant]
     Route: 048
  13. SELBEX [Concomitant]
     Route: 048
  14. CRESTOR [Concomitant]
     Route: 048

REACTIONS (2)
  - RENAL FAILURE [None]
  - GASTROINTESTINAL HAEMORRHAGE [None]
